FAERS Safety Report 19242732 (Version 1)
Quarter: 2021Q2

REPORT INFORMATION
  Report Type: Spontaneous
  Country: CN (occurrence: CN)
  Receive Date: 20210510
  Receipt Date: 20210510
  Transmission Date: 20210717
  Serious: Yes (Other)
  Sender: FDA-Public Use
  Company Number: CN-BAXTER-2021BAX009954

PATIENT
  Age: 51 Year
  Sex: Female
  Weight: 55 kg

DRUGS (5)
  1. IFOSFAMIDE. [Suspect]
     Active Substance: IFOSFAMIDE
     Dosage: POSTOPERATIVE ADJUVANT CHEMOTHERAPY IE REGIMEN
     Route: 041
     Dates: start: 20210414, end: 20210415
  2. UROMITEXAN [Suspect]
     Active Substance: MESNA
     Dosage: AT THE BEGINNING OF INFUSION AND 4H AND 8H AFTER INFUSION OF IFOSFAMIDE
     Route: 042
     Dates: start: 20210414, end: 20210415
  3. UROMITEXAN [Suspect]
     Active Substance: MESNA
     Indication: PROPHYLAXIS
     Dosage: AT THE BEGINNING OF INFUSION AND 4H AND 8H AFTER INFUSION OF IFOSFAMIDE
     Route: 042
     Dates: start: 20210409, end: 20210411
  4. IFOSFAMIDE. [Suspect]
     Active Substance: IFOSFAMIDE
     Indication: LEIOMYOSARCOMA
     Dosage: POSTOPERATIVE ADJUVANT CHEMOTHERAPY IE REGIMEN
     Route: 041
     Dates: start: 20210409, end: 20210411
  5. EPIRUBICIN HYDROCHLORIDE. [Suspect]
     Active Substance: EPIRUBICIN HYDROCHLORIDE
     Indication: LEIOMYOSARCOMA
     Dosage: IE REGIMEN, POSTOPERATIVE ADJUVANT CHEMOTHERAPY, DAY 1?2
     Route: 041
     Dates: start: 20210409, end: 20210410

REACTIONS (1)
  - Myelosuppression [Recovering/Resolving]

NARRATIVE: CASE EVENT DATE: 20210419
